FAERS Safety Report 8885580 (Version 3)
Quarter: 2013Q1

REPORT INFORMATION
  Report Type: Spontaneous
  Country: US (occurrence: US)
  Receive Date: 20121101
  Receipt Date: 20130108
  Transmission Date: 20140127
  Serious: No
  Sender: FDA-Public Use
  Company Number: US-PFIZER INC-2012268355

PATIENT
  Age: 53 Year
  Sex: Female

DRUGS (6)
  1. REVATIO [Suspect]
     Dosage: UNK
  2. LETAIRIS [Suspect]
     Indication: PULMONARY ARTERIAL HYPERTENSION
     Dosage: 5 MG, 1X/DAY
     Route: 048
     Dates: start: 20121013
  3. LETAIRIS [Suspect]
     Indication: PULMONARY HYPERTENSION
  4. LETAIRIS [Suspect]
     Indication: SCLERODERMA
  5. LETAIRIS [Suspect]
     Indication: PULMONARY FIBROSIS
  6. LETAIRIS [Suspect]
     Indication: INTERSTITIAL LUNG DISEASE

REACTIONS (2)
  - Oedema [Unknown]
  - Back pain [Unknown]
